FAERS Safety Report 6894365-9 (Version None)
Quarter: 2010Q3

REPORT INFORMATION
  Report Type: 
  Country: None (occurrence: None)
  Receive Date: 20100708
  Receipt Date: 20090527
  Transmission Date: 20110219
  Serious: Yes (Other)
  Sender: FDA-Public Use
  Company Number: 2009219891

PATIENT
  Age: 24 Year
  Sex: Female
  Weight: 59 kg

DRUGS (2)
  1. CHANTIX [Suspect]
     Indication: SMOKING CESSATION THERAPY
     Dosage: ORAL; 1 MG, 2X/DAY, ORAL
     Route: 048
     Dates: start: 20080112, end: 20080212
  2. CHANTIX [Suspect]
     Indication: SMOKING CESSATION THERAPY
     Dosage: ORAL; 1 MG, 2X/DAY, ORAL
     Route: 048
     Dates: start: 20080712, end: 20080812

REACTIONS (2)
  - DEPRESSION [None]
  - SUICIDAL IDEATION [None]
